FAERS Safety Report 18677645 (Version 1)
Quarter: 2020Q4

REPORT INFORMATION
  Report Type: Report from Study
  Country: MY (occurrence: MY)
  Receive Date: 20201229
  Receipt Date: 20201229
  Transmission Date: 20210114
  Serious: No
  Sender: FDA-Public Use
  Company Number: MY-KARYOPHARM-2020KPT001357

PATIENT
  Age: 70 Year
  Sex: Female

DRUGS (1)
  1. SELINEXOR [Suspect]
     Active Substance: SELINEXOR
     Indication: DIFFUSE LARGE B-CELL LYMPHOMA
     Dosage: UNK
     Dates: start: 20201005, end: 20201102

REACTIONS (2)
  - Diffuse large B-cell lymphoma refractory [Not Recovered/Not Resolved]
  - Conjunctival oedema [Unknown]

NARRATIVE: CASE EVENT DATE: 2020
